FAERS Safety Report 8553967-4 (Version None)
Quarter: 2012Q3

REPORT INFORMATION
  Report Type: 
  Country: None (occurrence: None)
  Receive Date: 20120731
  Receipt Date: 20120726
  Transmission Date: 20120928
  Serious: Yes (Other)
  Sender: FDA-Public Use
  Company Number: JP-PFIZER INC-2011252534

PATIENT
  Sex: Female

DRUGS (4)
  1. LYRICA [Suspect]
     Indication: BACK PAIN
     Dosage: 100 MG/DAY
     Route: 048
     Dates: start: 20110601
  2. RIZE [Concomitant]
     Dosage: UNK
  3. VIVIANT [Concomitant]
     Dosage: UNK
  4. LYRICA [Suspect]
     Indication: PAIN
     Dosage: 150 MG, DAILY
     Route: 048

REACTIONS (7)
  - DIZZINESS [None]
  - SOMNOLENCE [None]
  - FRACTURE [None]
  - FALL [None]
  - DRUG INEFFECTIVE [None]
  - ASTHENIA [None]
  - MUSCULAR WEAKNESS [None]
